FAERS Safety Report 20740075 (Version 1)
Quarter: 2022Q2

REPORT INFORMATION
  Report Type: Spontaneous
  Country: US (occurrence: None)
  Receive Date: 20220422
  Receipt Date: 20220422
  Transmission Date: 20220721
  Serious: Yes (Hospitalization, Disabling)
  Sender: FDA-Public Use
  Company Number: None

PATIENT
  Age: 46 Year
  Sex: Female
  Weight: 53.1 kg

DRUGS (3)
  1. PROGESTERONE [Suspect]
     Active Substance: PROGESTERONE
     Indication: Hormone therapy
     Dosage: FREQUENCY : AT BEDTIME;?QUANTITY: 40 CAPSULE
     Route: 048
     Dates: start: 20220322, end: 20220401
  2. ESTROGENS [Concomitant]
     Active Substance: ESTROGENS
  3. TESTOSTERONE [Concomitant]
     Active Substance: TESTOSTERONE

REACTIONS (6)
  - Chest pain [None]
  - Dyspnoea [None]
  - Dizziness [None]
  - Mental impairment [None]
  - Progesterone increased [None]
  - Suspected product quality issue [None]

NARRATIVE: CASE EVENT DATE: 20220326
